FAERS Safety Report 6937064 (Version 2)
Quarter: 2015Q3

REPORT INFORMATION
  Report Type: Spontaneous
  Country: FR (occurrence: FR)
  Receive Date: 20090313
  Receipt Date: 20150928
  Transmission Date: 20151125
  Serious: Yes (Congenital Anomaly, Other)
  Sender: FDA-Public Use
  Company Number: FR-BRISTOL-MYERS SQUIBB COMPANY-14538771

PATIENT

DRUGS (1)
  1. COUMADIN [Suspect]
     Active Substance: WARFARIN SODIUM
     Indication: PRODUCT USED FOR UNKNOWN INDICATION
     Dosage: UNK
     Route: 064

REACTIONS (4)
  - Micrognathia [Unknown]
  - Congenital cardiovascular anomaly [Unknown]
  - Muscle atrophy [Unknown]
  - Foetal exposure during pregnancy [Unknown]
